FAERS Safety Report 23451936 (Version 1)
Quarter: 2024Q1

REPORT INFORMATION
  Report Type: Spontaneous
  Country: US (occurrence: None)
  Receive Date: 20240127
  Receipt Date: 20240127
  Transmission Date: 20240410
  Serious: No
  Sender: FDA-Public Use
  Company Number: None

PATIENT
  Age: 48 Year
  Sex: Female
  Weight: 54.9 kg

DRUGS (2)
  1. PAXLOVID [Suspect]
     Active Substance: NIRMATRELVIR\RITONAVIR
     Indication: COVID-19
     Dosage: OTHER QUANTITY : 3 CAPSULE(S);?FREQUENCY : TWICE A DAY;?
     Route: 048
     Dates: start: 20240118, end: 20240122
  2. VITAMINS [Concomitant]
     Active Substance: VITAMINS

REACTIONS (4)
  - COVID-19 [None]
  - SARS-CoV-2 test negative [None]
  - SARS-CoV-2 test positive [None]
  - Expired product administered [None]

NARRATIVE: CASE EVENT DATE: 20240126
